FAERS Safety Report 5676317-X (Version None)
Quarter: 2008Q1

REPORT INFORMATION
  Report Type: 
  Country: None (occurrence: None)
  Receive Date: 20080321
  Receipt Date: 20080310
  Transmission Date: 20080703
  Serious: Yes (Other)
  Sender: FDA-Public Use
  Company Number: US-PFIZER INC-2008013887

PATIENT
  Sex: Male
  Weight: 104.54 kg

DRUGS (3)
  1. DILANTIN [Suspect]
     Indication: CONVULSION
  2. DILANTIN [Suspect]
     Indication: EPILEPSY
  3. CLARITIN [Concomitant]

REACTIONS (6)
  - ANTICONVULSANT DRUG LEVEL INCREASED [None]
  - ASTHENIA [None]
  - DIZZINESS [None]
  - HYPERLIPIDAEMIA [None]
  - INSOMNIA [None]
  - NAUSEA [None]
